FAERS Safety Report 11709131 (Version 1)
Quarter: 2015Q4

REPORT INFORMATION
  Report Type: Spontaneous
  Country: US (occurrence: US)
  Receive Date: 20151104
  Receipt Date: 20151104
  Transmission Date: 20160304
  Serious: No
  Sender: FDA-Public Use
  Company Number: US-ELI_LILLY_AND_COMPANY-US201109000543

PATIENT
  Sex: Male

DRUGS (1)
  1. FORTEO [Suspect]
     Active Substance: TERIPARATIDE
     Indication: OSTEOPOROSIS
     Dosage: 20 UG, QD
     Route: 065
     Dates: start: 201010, end: 20110825

REACTIONS (6)
  - Spinal pain [Unknown]
  - Headache [Not Recovered/Not Resolved]
  - Nausea [Unknown]
  - Neck pain [Unknown]
  - Musculoskeletal pain [Unknown]
  - Pain [Recovered/Resolved]
